FAERS Safety Report 12215186 (Version 1)
Quarter: 2016Q1

REPORT INFORMATION
  Report Type: Spontaneous
  Country: None (occurrence: CO)
  Receive Date: 20160328
  Receipt Date: 20160328
  Transmission Date: 20160526
  Serious: Yes (Other)
  Sender: FDA-Public Use
  Company Number: CO-POPULATION COUNCIL, INC.-1049827

PATIENT
  Age: 26 Year
  Sex: Female
  Weight: 66 kg

DRUGS (1)
  1. JADELLE [Suspect]
     Active Substance: LEVONORGESTREL
     Indication: CONTRACEPTION
     Route: 059
     Dates: start: 20080728, end: 20101108

REACTIONS (5)
  - Pregnancy with implant contraceptive [None]
  - Abortion threatened [None]
  - Feeling abnormal [None]
  - Headache [None]
  - Exposure during pregnancy [None]

NARRATIVE: CASE EVENT DATE: 20100901
